FAERS Safety Report 8046023-5 (Version None)
Quarter: 2012Q1

REPORT INFORMATION
  Report Type: 
  Country: None (occurrence: None)
  Receive Date: 20120113
  Receipt Date: 20120111
  Transmission Date: 20120608
  Serious: No
  Sender: FDA-Public Use
  Company Number: US-PFIZER INC-2012009778

PATIENT
  Sex: Male
  Weight: 71.202 kg

DRUGS (2)
  1. CHANTIX [Suspect]
     Dosage: 1 MG, UNK
     Dates: start: 20111230
  2. CHANTIX [Suspect]
     Dosage: UNK
     Route: 048

REACTIONS (3)
  - MALAISE [None]
  - EXPIRED DRUG ADMINISTERED [None]
  - INCORRECT DOSE ADMINISTERED [None]
